FAERS Safety Report 7328991-X (Version None)
Quarter: 2011Q1

REPORT INFORMATION
  Report Type: 
  Country: None (occurrence: None)
  Receive Date: 20110225
  Receipt Date: 20110225
  Transmission Date: 20110831
  Serious: Yes (Hospitalization)
  Sender: FDA-Public Use
  Company Number: None

PATIENT
  Age: 30 Year
  Sex: Male
  Weight: 99 kg

DRUGS (4)
  1. TRAZODONE HCL [Suspect]
  2. SERTRALINE HYDROCHLORIDE [Suspect]
  3. TRAMADOL HCL [Suspect]
     Indication: PAIN
     Dosage: 50 MG QID PO
     Route: 048
     Dates: start: 20101102, end: 20101102
  4. SUMATRIPTAN SUCCINATE [Suspect]

REACTIONS (3)
  - OVERDOSE [None]
  - GRAND MAL CONVULSION [None]
  - DRUG INTERACTION [None]
